FAERS Safety Report 18334692 (Version 6)
Quarter: 2023Q2

REPORT INFORMATION
  Report Type: Report from Study
  Country: US (occurrence: US)
  Receive Date: 20201001
  Receipt Date: 20230626
  Transmission Date: 20230721
  Serious: Yes (Other)
  Sender: FDA-Public Use
  Company Number: US-PFIZER INC-2020375554

PATIENT
  Sex: Female
  Weight: 104.33 kg

DRUGS (4)
  1. LYRICA [Suspect]
     Active Substance: PREGABALIN
     Indication: Fibromyalgia
     Dosage: 50 MILLIGRAM
     Route: 065
  2. LYRICA [Suspect]
     Active Substance: PREGABALIN
     Indication: Pain in extremity
     Dosage: 100 MILLIGRAM
     Route: 065
  3. LYRICA [Suspect]
     Active Substance: PREGABALIN
     Indication: Seizure
     Dosage: 200 MILLIGRAM, BID (200 MG, 2X/DAY)
     Route: 048
  4. LYRICA [Suspect]
     Active Substance: PREGABALIN
     Dosage: UNK
     Route: 065

REACTIONS (7)
  - Fall [Unknown]
  - Spinal fracture [Unknown]
  - Memory impairment [Unknown]
  - Pain in extremity [Unknown]
  - Malaise [Unknown]
  - Withdrawal syndrome [Unknown]
  - Pain [Unknown]
